FAERS Safety Report 18764320 (Version 1)
Quarter: 2021Q1

REPORT INFORMATION
  Report Type: Other
  Country: SG (occurrence: SG)
  Receive Date: 20210120
  Receipt Date: 20210120
  Transmission Date: 20210419
  Serious: Yes (Other)
  Sender: FDA-Public Use
  Company Number: SG-ROCHE-2750791

PATIENT

DRUGS (6)
  1. BEVACIZUMAB. [Suspect]
     Active Substance: BEVACIZUMAB
     Indication: NASOPHARYNGEAL CANCER
     Dosage: ARM D: STARTING 1 WEEK PRIOR TO EACH CYCLE OF THE SAME CHEMOTHERAPY.
     Route: 042
  2. BEVACIZUMAB. [Suspect]
     Active Substance: BEVACIZUMAB
     Indication: NASOPHARYNGEAL CANCER METASTATIC
     Dosage: ARM C: STARTING 1 WEEK PRIOR TO EACH CYCLE OF THE SAME CHEMOTHERAPY.
     Route: 042
  3. GEMCITABINE. [Suspect]
     Active Substance: GEMCITABINE
     Indication: NASOPHARYNGEAL CANCER
  4. GEMCITABINE. [Suspect]
     Active Substance: GEMCITABINE
     Indication: NASOPHARYNGEAL CANCER METASTATIC
     Dosage: 1 G/M2 ON DAYS 1 AND 8
     Route: 042
  5. CISPLATIN. [Suspect]
     Active Substance: CISPLATIN
     Indication: NASOPHARYNGEAL CANCER
  6. CISPLATIN. [Suspect]
     Active Substance: CISPLATIN
     Indication: NASOPHARYNGEAL CANCER METASTATIC
     Dosage: ON DAY 1
     Route: 042

REACTIONS (10)
  - Cerebrovascular accident [Unknown]
  - Hyponatraemia [Unknown]
  - Leukopenia [Unknown]
  - Hypertension [Unknown]
  - Proteinuria [Unknown]
  - Febrile neutropenia [Unknown]
  - Blood creatinine increased [Unknown]
  - Anaemia [Unknown]
  - Thrombocytopenia [Unknown]
  - Vomiting [Unknown]
